FAERS Safety Report 5693248-X (Version None)
Quarter: 2008Q2

REPORT INFORMATION
  Report Type: 
  Country: None (occurrence: None)
  Receive Date: 20080403
  Receipt Date: 20080327
  Transmission Date: 20081010
  Serious: Yes (Hospitalization, Other)
  Sender: FDA-Public Use
  Company Number: PHHY2008JP01748

PATIENT
  Age: 65 Year
  Sex: Male
  Weight: 70 kg

DRUGS (7)
  1. AMLODIN [Concomitant]
     Dosage: 5 MG
     Route: 048
  2. ASPIRIN [Concomitant]
     Dosage: 100 MG, UNK
     Route: 048
  3. NORVASC [Concomitant]
     Dosage: 5 MG, UNK
     Route: 048
  4. BLOPRESS [Concomitant]
     Dosage: 4 MG, UNK
     Route: 048
  5. CARDENALIN [Concomitant]
     Dosage: 2 MG, UNK
     Route: 048
  6. LOCHOL [Suspect]
     Indication: HYPERLIPIDAEMIA
     Dosage: 20 MG/ DAY
     Route: 048
  7. PLASMA [Concomitant]

REACTIONS (21)
  - ALANINE AMINOTRANSFERASE INCREASED [None]
  - ANOREXIA [None]
  - ASPARTATE AMINOTRANSFERASE INCREASED [None]
  - BLOOD ALKALINE PHOSPHATASE INCREASED [None]
  - BLOOD CREATININE INCREASED [None]
  - BLOOD LACTATE DEHYDROGENASE INCREASED [None]
  - BLOOD POTASSIUM DECREASED [None]
  - BLOOD UREA INCREASED [None]
  - HAEMATOCRIT DECREASED [None]
  - HAEMOGLOBIN DECREASED [None]
  - HAEMOLYTIC ANAEMIA [None]
  - LIVER FUNCTION TEST ABNORMAL [None]
  - MECHANICAL VENTILATION [None]
  - PLATELET COUNT DECREASED [None]
  - PULMONARY OEDEMA [None]
  - RED BLOOD CELL COUNT DECREASED [None]
  - RED BLOOD CELL MORPHOLOGY ABNORMAL [None]
  - RENAL FAILURE [None]
  - RENAL IMPAIRMENT [None]
  - THROMBOCYTOPENIA [None]
  - THROMBOTIC THROMBOCYTOPENIC PURPURA [None]
